FAERS Safety Report 5070445-8 (Version None)
Quarter: 2006Q3

REPORT INFORMATION
  Report Type: 
  Country: None (occurrence: None)
  Receive Date: 20060804
  Receipt Date: 20060207
  Transmission Date: 20061208
  Serious: Yes (Other)
  Sender: FDA-Public Use
  Company Number: GB-ABBOTT-06P-166-0324667-00

PATIENT
  Sex: Female

DRUGS (7)
  1. HUMIRA [Suspect]
     Indication: JUVENILE ARTHRITIS
     Route: 050
     Dates: start: 20031022, end: 20040915
  2. METHOTREXATE [Concomitant]
  3. DEFLAZACORT [Concomitant]
  4. FOLIC ACID [Concomitant]
  5. ORAL CONTRACEPTIVE NOS [Concomitant]
  6. ACETAMINOPHEN [Concomitant]
  7. DICLOFENAC SODIUM [Concomitant]

REACTIONS (2)
  - ABORTION SPONTANEOUS [None]
  - DRUG EXPOSURE DURING PREGNANCY [None]
